FAERS Safety Report 9213770 (Version 2)
Quarter: 2013Q3

REPORT INFORMATION
  Report Type: Report from Study
  Country: CA (occurrence: CA)
  Receive Date: 20130405
  Receipt Date: 20130712
  Transmission Date: 20140515
  Serious: Yes (Hospitalization)
  Sender: FDA-Public Use
  Company Number: CA-JNJFOC-20130317813

PATIENT
  Age: 44 Year
  Sex: Female
  Weight: 85.2 kg

DRUGS (13)
  1. REMICADE [Suspect]
     Indication: RHEUMATOID ARTHRITIS
     Route: 042
     Dates: start: 20091112
  2. VENTOLIN [Concomitant]
     Route: 065
  3. SYMBICORT [Concomitant]
     Route: 065
  4. CYCLOBENZAPRINE [Concomitant]
     Route: 065
  5. METHOTREXATE [Concomitant]
     Route: 065
  6. PLAQUENIL [Concomitant]
     Route: 065
  7. SULFASALAZINE [Concomitant]
     Route: 065
  8. IMOVANE [Concomitant]
     Route: 065
  9. FOLIC ACID [Concomitant]
     Route: 065
  10. LANSOPRAZOLE [Concomitant]
     Route: 065
  11. KETOROLAC [Concomitant]
     Route: 065
  12. OPIATES [Concomitant]
     Route: 048
  13. CYMBALTA [Concomitant]
     Route: 065

REACTIONS (2)
  - Neck pain [Not Recovered/Not Resolved]
  - Pain [Not Recovered/Not Resolved]
